FAERS Safety Report 7149698-8 (Version None)
Quarter: 2010Q4

REPORT INFORMATION
  Report Type: 
  Country: None (occurrence: None)
  Receive Date: 20101210
  Receipt Date: 20101202
  Transmission Date: 20110411
  Serious: Yes (Other)
  Sender: FDA-Public Use
  Company Number: US-AMGEN-TCS443081

PATIENT

DRUGS (11)
  1. ENBREL [Suspect]
     Indication: RHEUMATOID ARTHRITIS
     Dosage: 50 MG, QWK
     Route: 058
     Dates: start: 20000101
  2. METHOTREXATE [Concomitant]
     Dosage: 17.5 MG, QWK
     Route: 048
  3. REMICADE [Concomitant]
     Dosage: UNK UNK, UNK
     Dates: start: 20070101, end: 20090101
  4. FOLIC ACID [Concomitant]
     Dosage: 1 MG, QD
  5. ULTRACET [Concomitant]
     Dosage: UNK
     Route: 048
  6. VITAMIN A [Concomitant]
     Dosage: 50000 IU, Q2WK
  7. ASPIRIN [Concomitant]
  8. PREDNISONE [Concomitant]
     Dosage: UNK
  9. OMEPRAZOLE [Concomitant]
     Dosage: UNK
  10. VESICARE [Concomitant]
     Indication: URINARY TRACT INFECTION
     Dosage: 5 MG, QD
  11. KEFLEX [Concomitant]
     Dosage: UNK

REACTIONS (15)
  - CHONDROPATHY [None]
  - HYPERSENSITIVITY [None]
  - JOINT EFFUSION [None]
  - LACRIMATION INCREASED [None]
  - MAJOR DEPRESSION [None]
  - OSTEOPOROSIS POSTMENOPAUSAL [None]
  - POLYP [None]
  - RENAL CYST [None]
  - RENAL FAILURE [None]
  - RENAL MASS [None]
  - RHEUMATOID ARTHRITIS [None]
  - RHINORRHOEA [None]
  - STRESS [None]
  - SYNOVITIS [None]
  - URINARY TRACT INFECTION PSEUDOMONAL [None]
